FAERS Safety Report 9752174 (Version 1)
Quarter: 2013Q4

REPORT INFORMATION
  Report Type: Spontaneous
  Country: US (occurrence: None)
  Receive Date: 20131211
  Receipt Date: 20131211
  Transmission Date: 20140711
  Serious: Yes (Hospitalization)
  Sender: FDA-Public Use
  Company Number: None

PATIENT
  Age: 78 Year
  Sex: Male
  Weight: 77.8 kg

DRUGS (1)
  1. BEVACIZUMAB [Suspect]

REACTIONS (6)
  - Dyspnoea [None]
  - Dizziness [None]
  - Mental status changes [None]
  - Hypotension [None]
  - Hypoxia [None]
  - Confusional state [None]
